FAERS Safety Report 7588783-3 (Version None)
Quarter: 2011Q3

REPORT INFORMATION
  Report Type: 
  Country: None (occurrence: None)
  Receive Date: 20110705
  Receipt Date: 20110622
  Transmission Date: 20111222
  Serious: Yes (Hospitalization)
  Sender: FDA-Public Use
  Company Number: DE-ELI_LILLY_AND_COMPANY-DE201106006295

PATIENT
  Age: 51 Year
  Sex: Female

DRUGS (3)
  1. FORTEO [Suspect]
     Indication: OSTEOPOROSIS
     Dosage: UNK, QD
     Route: 058
     Dates: start: 20101211
  2. CALCIUM CARBONATE [Concomitant]
     Indication: MINERAL SUPPLEMENTATION
  3. VITAMIN D [Concomitant]
     Indication: VITAMIN SUPPLEMENTATION

REACTIONS (4)
  - INJECTION SITE PAIN [None]
  - DIARRHOEA [None]
  - WEIGHT DECREASED [None]
  - CLOSTRIDIAL INFECTION [None]
